FAERS Safety Report 9797839 (Version 1)
Quarter: 2014Q1

REPORT INFORMATION
  Report Type: Spontaneous
  Country: US (occurrence: None)
  Receive Date: 20140102
  Receipt Date: 20140102
  Transmission Date: 20141002
  Serious: Yes (Hospitalization)
  Sender: FDA-Public Use
  Company Number: None

PATIENT
  Age: 72 Year
  Sex: Male

DRUGS (1)
  1. WARFARIN [Suspect]
     Indication: ATRIAL FIBRILLATION
     Dosage: EVERY DAY
     Route: 048
     Dates: start: 20130501, end: 20131105

REACTIONS (7)
  - Anaemia [None]
  - Melaena [None]
  - Vasodilatation [None]
  - Gastric haemorrhage [None]
  - Angiodysplasia [None]
  - Iron deficiency [None]
  - International normalised ratio abnormal [None]
